FAERS Safety Report 8619959-1 (Version None)
Quarter: 2012Q3

REPORT INFORMATION
  Report Type: 
  Country: None (occurrence: None)
  Receive Date: 20120817
  Receipt Date: 20120817
  Transmission Date: 20120928
  Serious: Yes (Hospitalization)
  Sender: FDA-Public Use
  Company Number: None

PATIENT
  Age: 79 Year
  Sex: Female
  Weight: 98.3 kg

DRUGS (1)
  1. NITROGLYCERIN [Suspect]
     Indication: CHEST PAIN
     Dosage: 0.4 MG, Q 5 MIN FOR CP,SL
     Dates: start: 20120814, end: 20120814

REACTIONS (1)
  - PRODUCT SOLUBILITY ABNORMAL [None]
